FAERS Safety Report 8859376 (Version 2)
Quarter: 2015Q3

REPORT INFORMATION
  Report Type: Report from Study
  Country: US (occurrence: US)
  Receive Date: 20121024
  Receipt Date: 20150813
  Transmission Date: 20151125
  Serious: Yes (Death)
  Sender: FDA-Public Use
  Company Number: US-ROCHE-1125724

PATIENT
  Sex: Female

DRUGS (14)
  1. TAXOL [Concomitant]
     Active Substance: PACLITAXEL
     Route: 065
  2. HERCEPTIN [Suspect]
     Active Substance: TRASTUZUMAB
     Indication: BREAST CANCER
     Route: 042
     Dates: start: 19990825
  3. HERCEPTIN [Suspect]
     Active Substance: TRASTUZUMAB
     Route: 042
  4. TAXOL [Concomitant]
     Active Substance: PACLITAXEL
     Route: 065
  5. BENADRYL [Concomitant]
     Active Substance: DIPHENHYDRAMINE HYDROCHLORIDE
     Route: 065
  6. TYLENOL [Concomitant]
     Active Substance: ACETAMINOPHEN
     Route: 065
  7. TAXOL [Concomitant]
     Active Substance: PACLITAXEL
     Route: 065
  8. CARBOPLATIN. [Concomitant]
     Active Substance: CARBOPLATIN
     Route: 065
  9. KYTRIL [Concomitant]
     Active Substance: GRANISETRON HYDROCHLORIDE
     Route: 065
  10. PROCRIT [Concomitant]
     Active Substance: ERYTHROPOIETIN
     Route: 058
  11. CARBOPLATIN. [Concomitant]
     Active Substance: CARBOPLATIN
     Route: 065
  12. CARBOPLATIN. [Concomitant]
     Active Substance: CARBOPLATIN
     Route: 065
  13. TAGAMET [Concomitant]
     Active Substance: CIMETIDINE
     Route: 065
  14. HERCEPTIN [Suspect]
     Active Substance: TRASTUZUMAB
     Indication: BREAST CANCER FEMALE
     Route: 042

REACTIONS (21)
  - Neuropathy peripheral [Unknown]
  - Mass [Unknown]
  - Death [Fatal]
  - Hypoaesthesia [Unknown]
  - Dysphonia [Unknown]
  - Sinus headache [Unknown]
  - Nasopharyngitis [Unknown]
  - Neutropenia [Unknown]
  - Fatigue [Unknown]
  - Heart rate increased [Unknown]
  - Decreased appetite [Unknown]
  - Arthralgia [Unknown]
  - Tenderness [Unknown]
  - Weight decreased [Unknown]
  - Alopecia [Unknown]
  - Nasal discharge discolouration [Unknown]
  - Drug dose omission [Unknown]
  - VIth nerve paralysis [Unknown]
  - Pyrexia [Unknown]
  - Asthenia [Unknown]
  - Malaise [Unknown]
